FAERS Safety Report 20786644 (Version 2)
Quarter: 2022Q2

REPORT INFORMATION
  Report Type: Spontaneous
  Country: US (occurrence: US)
  Receive Date: 20220505
  Receipt Date: 20220622
  Transmission Date: 20220721
  Serious: No
  Sender: FDA-Public Use
  Company Number: US-JNJFOC-20220455094

PATIENT
  Age: 78 Year
  Sex: Female
  Weight: 82.1 kg

DRUGS (2)
  1. DARZALEX [Suspect]
     Active Substance: DARATUMUMAB
     Indication: Plasma cell myeloma
     Dosage: 3 VIALS
     Route: 041
     Dates: start: 20220427
  2. DARZALEX [Suspect]
     Active Substance: DARATUMUMAB
     Dosage: 1 VIAL
     Route: 065

REACTIONS (5)
  - Dyspnoea [Recovered/Resolved]
  - Flushing [Recovered/Resolved]
  - Ear discomfort [Recovered/Resolved]
  - Feeling hot [Recovered/Resolved]
  - Infusion related reaction [Recovered/Resolved]

NARRATIVE: CASE EVENT DATE: 20220427
